FAERS Safety Report 22158890 (Version 1)
Quarter: 2023Q1

REPORT INFORMATION
  Report Type: Spontaneous
  Country: US (occurrence: US)
  Receive Date: 20230331
  Receipt Date: 20230331
  Transmission Date: 20230418
  Serious: No
  Sender: FDA-Public Use
  Company Number: US-SA-SAC20230329000625

PATIENT
  Sex: Female

DRUGS (9)
  1. AUBAGIO [Suspect]
     Active Substance: TERIFLUNOMIDE
     Dosage: 1 DF, QD
     Route: 048
  2. OMEPRAZOLE [Concomitant]
     Active Substance: OMEPRAZOLE
  3. OZEMPIC [Concomitant]
     Active Substance: SEMAGLUTIDE
  4. PREGABALIN [Concomitant]
     Active Substance: PREGABALIN
  5. RIZATRIPTAN [Concomitant]
     Active Substance: RIZATRIPTAN
  6. HIGH DENSITY POLYETHYLENE [Concomitant]
     Active Substance: HIGH DENSITY POLYETHYLENE
  7. AFTER BITE [AMMONIA WATER] [Concomitant]
  8. ANTISEPTIC SOLUTION [Concomitant]
  9. HYDROGEN PEROXIDE [Concomitant]
     Active Substance: HYDROGEN PEROXIDE

REACTIONS (9)
  - Tremor [Not Recovered/Not Resolved]
  - Urinary incontinence [Not Recovered/Not Resolved]
  - Visual impairment [Not Recovered/Not Resolved]
  - Gait disturbance [Not Recovered/Not Resolved]
  - Balance disorder [Not Recovered/Not Resolved]
  - Eye movement disorder [Not Recovered/Not Resolved]
  - Alopecia [Not Recovered/Not Resolved]
  - Paraesthesia [Not Recovered/Not Resolved]
  - Hypoaesthesia [Not Recovered/Not Resolved]
